FAERS Safety Report 4826991-2 (Version None)
Quarter: 2005Q4

REPORT INFORMATION
  Report Type: 
  Country: None (occurrence: None)
  Receive Date: 20051014
  Receipt Date: 20050816
  Transmission Date: 20060501
  Serious: No
  Sender: FDA-Public Use
  Company Number: 2005SP000820

PATIENT
  Age: 85 Year
  Sex: Female
  Weight: 68.0396 kg

DRUGS (4)
  1. LUNESTA [Suspect]
     Indication: INSOMNIA
     Dosage: 2 MG;X1;ORAL
     Route: 048
     Dates: start: 20050513, end: 20050513
  2. TENORMIN [Concomitant]
  3. BENECAR [Concomitant]
  4. HYDROCHLOROTHIAZIDE [Concomitant]

REACTIONS (5)
  - INSOMNIA [None]
  - PANIC ATTACK [None]
  - PARADOXICAL DRUG REACTION [None]
  - PRURITUS [None]
  - TACHYPNOEA [None]
